FAERS Safety Report 10462158 (Version 2)
Quarter: 2014Q3

REPORT INFORMATION
  Report Type: Spontaneous
  Country: US (occurrence: US)
  Receive Date: 20140918
  Receipt Date: 20140918
  Transmission Date: 20150326
  Serious: Yes (Death, Hospitalization)
  Sender: FDA-Public Use
  Company Number: US-GLAXOSMITHKLINE-A0879557A

PATIENT
  Sex: Male
  Weight: 57.3 kg

DRUGS (9)
  1. NAMENDA [Concomitant]
     Active Substance: MEMANTINE HYDROCHLORIDE
  2. SEROQUEL [Concomitant]
     Active Substance: QUETIAPINE FUMARATE
  3. CLONIDINE. [Concomitant]
     Active Substance: CLONIDINE
  4. INSULIN [Concomitant]
     Active Substance: INSULIN NOS
  5. MEGACE [Concomitant]
     Active Substance: MEGESTROL ACETATE
  6. ZOLOFT [Concomitant]
     Active Substance: SERTRALINE HYDROCHLORIDE
  7. AVANDIA [Suspect]
     Active Substance: ROSIGLITAZONE MALEATE
     Indication: DIABETES MELLITUS
     Dosage: 2MG PER DAY
     Route: 048
  8. ZOCOR [Concomitant]
     Active Substance: SIMVASTATIN
  9. ALTACE [Concomitant]
     Active Substance: RAMIPRIL

REACTIONS (5)
  - Myocardial infarction [Unknown]
  - Dementia Alzheimer^s type [Fatal]
  - Transient ischaemic attack [Unknown]
  - Cardio-respiratory arrest [Unknown]
  - Cerebrovascular disorder [Fatal]
